FAERS Safety Report 11058539 (Version 1)
Quarter: 2015Q2

REPORT INFORMATION
  Report Type: Spontaneous
  Country: CN (occurrence: CN)
  Receive Date: 20150423
  Receipt Date: 20150423
  Transmission Date: 20150821
  Serious: Yes (Hospitalization)
  Sender: FDA-Public Use
  Company Number: CN-ROCHE-1567339

PATIENT
  Age: 77 Year
  Sex: Male

DRUGS (6)
  1. RANIBIZUMAB [Suspect]
     Active Substance: RANIBIZUMAB
     Indication: AGE-RELATED MACULAR DEGENERATION
     Route: 050
  2. POVIDONE IODINE [Concomitant]
     Active Substance: POVIDONE-IODINE
     Route: 065
  3. TOBRAMYCIN. [Concomitant]
     Active Substance: TOBRAMYCIN
     Route: 065
  4. PROPARACAINE HYDROCHLORIDE. [Concomitant]
     Active Substance: PROPARACAINE HYDROCHLORIDE
     Route: 065
  5. DEXAMETASON [Concomitant]
     Active Substance: DEXAMETHASONE
     Route: 065
  6. SALINE [Concomitant]
     Active Substance: SODIUM CHLORIDE

REACTIONS (1)
  - Conjunctival granuloma [Recovered/Resolved]
